FAERS Safety Report 23421028 (Version 1)
Quarter: 2024Q1

REPORT INFORMATION
  Report Type: Spontaneous
  Country: GB (occurrence: GB)
  Receive Date: 20240119
  Receipt Date: 20240119
  Transmission Date: 20240409
  Serious: Yes (Congenital Anomaly, Other)
  Sender: FDA-Public Use
  Company Number: GB-ABBVIE-4152842

PATIENT
  Age: 6 Month
  Weight: 2 kg

DRUGS (12)
  1. EMTRICITABINE\TENOFOVIR [Suspect]
     Active Substance: EMTRICITABINE\TENOFOVIR
     Indication: Foetal exposure during pregnancy
     Dosage: MATERNAL EXPOSURE DURING PREGNANCY; 1 DOSAGE FORM QD 1 TAB/CAPS
     Route: 065
     Dates: start: 20210719
  2. ELVITEGRAVIR [Suspect]
     Active Substance: ELVITEGRAVIR
     Indication: Foetal exposure during pregnancy
     Dosage: MATERNAL EXPOSURE DURING PREGNANCY : UNK (TABS/CAPS)
     Route: 065
     Dates: start: 20210718
  3. REYATAZ [Suspect]
     Active Substance: ATAZANAVIR SULFATE
     Indication: Maternal exposure timing unspecified
     Dosage: 300 MILLIGRAM, QD
     Route: 064
     Dates: start: 20211229
  4. RALTEGRAVIR [Suspect]
     Active Substance: RALTEGRAVIR
     Indication: Foetal exposure during pregnancy
     Dosage: MATERNAL EXPOSURE DURING PREGNANCY: 300MG QD
     Route: 065
     Dates: start: 20210719, end: 20211228
  5. ISENTRESS [Suspect]
     Active Substance: RALTEGRAVIR POTASSIUM
     Indication: Maternal exposure timing unspecified
     Dosage: MATERNAL EXPOSURE DURING PREGNANCY: 800 MILLIGRAM, QD
     Route: 065
     Dates: start: 20210719, end: 20211228
  6. EMTRICITABINE\TENOFOVIR [Suspect]
     Active Substance: EMTRICITABINE\TENOFOVIR
     Indication: Foetal exposure during pregnancy
     Dosage: MATERNAL EXPOSURE DURING PREGNANCY: 1 DOSAGE FORM, QD (1 COURSES, EXPOSURE NO PRIOR TO CONCEPTION...
     Route: 065
  7. TIVICAY [Suspect]
     Active Substance: DOLUTEGRAVIR SODIUM
     Indication: Paternal exposure before pregnancy
     Dosage: MATERNAL EXPOSURE DURING PREGNANCY: 50 MILLIGRAM, QD
     Route: 065
     Dates: start: 20220125
  8. ATAZANAVIR [Suspect]
     Active Substance: ATAZANAVIR
     Indication: Product used for unknown indication
     Dosage: 300MG, QD
     Route: 064
     Dates: start: 20211229
  9. RITONAVIR [Suspect]
     Active Substance: RITONAVIR
     Indication: Paternal exposure before pregnancy
     Route: 064
     Dates: start: 20211229
  10. DOLUTEGRAVIR [Concomitant]
     Active Substance: DOLUTEGRAVIR
     Indication: Product used for unknown indication
     Dosage: 1 DOSAGE FORM, QD
     Route: 065
     Dates: start: 20220125
  11. STRIBILD [Suspect]
     Active Substance: COBICISTAT\ELVITEGRAVIR\EMTRICITABINE\TENOFOVIR DISOPROXIL FUMARATE
     Indication: Paternal exposure before pregnancy
     Dosage: MATERNAL EXPOSURE DURING PREGNANCY: 1 DOSAGE FORM, QD, 1 TAB/CAPS
     Route: 065
     Dates: end: 20210718
  12. COBICISTAT [Suspect]
     Active Substance: COBICISTAT
     Indication: HIV infection
     Dosage: 1 DOSAGE FORM, QD
     Route: 065
     Dates: end: 20210718

REACTIONS (6)
  - Single functional kidney [Not Recovered/Not Resolved]
  - Renal aplasia [Unknown]
  - Renal dysplasia [Not Recovered/Not Resolved]
  - Foetal exposure during delivery [Unknown]
  - Foetal exposure during pregnancy [Recovered/Resolved]
  - Foetal exposure during pregnancy [Unknown]

NARRATIVE: CASE EVENT DATE: 20220221
